FAERS Safety Report 24049362 (Version 1)
Quarter: 2024Q3

REPORT INFORMATION
  Report Type: Spontaneous
  Country: DE (occurrence: DE)
  Receive Date: 20240704
  Receipt Date: 20240704
  Transmission Date: 20241017
  Serious: No
  Sender: ALKEM
  Company Number: None

PATIENT
  Age: 20 Year
  Sex: Male
  Weight: 70 kg

DRUGS (4)
  1. IBUPROFEN [Interacting]
     Active Substance: IBUPROFEN
     Indication: Product used for unknown indication
     Dosage: UNK
     Route: 065
  2. ACETAMINOPHEN [Interacting]
     Active Substance: ACETAMINOPHEN
     Indication: Product used for unknown indication
     Dosage: UNK
     Route: 065
  3. DIMENHYDRINATE [Interacting]
     Active Substance: DIMENHYDRINATE
     Indication: Dizziness
     Dosage: UNK
     Route: 048
  4. DIMENHYDRINATE [Interacting]
     Active Substance: DIMENHYDRINATE
     Indication: Nausea

REACTIONS (4)
  - Concomitant drug effect decreased [Unknown]
  - Therapeutic product effect decreased [Unknown]
  - Tobacco interaction [Unknown]
  - Drug interaction [Unknown]
